FAERS Safety Report 9276083 (Version 1)
Quarter: 2013Q2

REPORT INFORMATION
  Report Type: Report from Study
  Country: US (occurrence: US)
  Receive Date: 20130507
  Receipt Date: 20130507
  Transmission Date: 20140414
  Serious: Yes (Other)
  Sender: FDA-Public Use
  Company Number: US-BAYER-2013-048159

PATIENT
  Age: 55 Year
  Sex: Male
  Weight: 73.47 kg

DRUGS (4)
  1. NEXAVAR [Suspect]
     Indication: HEPATIC CANCER
     Dosage: 400 MG, BID
     Route: 048
     Dates: start: 20130405
  2. GLIPIZIDE [Concomitant]
     Dosage: 10 MG, UNK
  3. METFORMIN [Concomitant]
     Dosage: 850 MG, UNK
  4. SPIRONOLACTONE [Concomitant]
     Dosage: 100 MG, UNK

REACTIONS (3)
  - Nausea [Unknown]
  - Aphagia [Unknown]
  - Nausea [Not Recovered/Not Resolved]
